FAERS Safety Report 18030151 (Version 2)
Quarter: 2024Q4

REPORT INFORMATION
  Report Type: Spontaneous
  Country: CA (occurrence: CA)
  Receive Date: 20200715
  Receipt Date: 20241018
  Transmission Date: 20250115
  Serious: Yes (Other)
  Sender: ANI
  Company Number: CA-ANIPHARMA-2020-CA-001243

PATIENT
  Age: 67 Year
  Sex: Female

DRUGS (1)
  1. ANASTROZOLE [Suspect]
     Active Substance: ANASTROZOLE
     Indication: Breast cancer
     Dosage: 1 MG DAILY
     Route: 048

REACTIONS (3)
  - Arthralgia [Unknown]
  - Burning sensation [Unknown]
  - Mobility decreased [Unknown]
